FAERS Safety Report 16097132 (Version 3)
Quarter: 2019Q2

REPORT INFORMATION
  Report Type: Spontaneous
  Country: IT (occurrence: IT)
  Receive Date: 20190320
  Receipt Date: 20190402
  Transmission Date: 20190711
  Serious: Yes (Death, Life-Threatening, Hospitalization, Other)
  Sender: FDA-Public Use
  Company Number: IT-PFIZER INC-2019120286

PATIENT
  Age: 72 Year
  Sex: Male

DRUGS (3)
  1. CARBOPLATIN. [Suspect]
     Active Substance: CARBOPLATIN
     Indication: LARYNGEAL SQUAMOUS CELL CARCINOMA
     Dosage: UNK, 11 CYCLIC
     Dates: start: 201605
  2. NIVOLUMAB [Suspect]
     Active Substance: NIVOLUMAB
     Indication: LARYNGEAL SQUAMOUS CELL CARCINOMA
     Dosage: UNK, 11 CYCLIC
     Dates: start: 201605
  3. TAXOTERE [Suspect]
     Active Substance: DOCETAXEL
     Indication: LARYNGEAL SQUAMOUS CELL CARCINOMA
     Dosage: UNK, 11 CYCLIC
     Dates: start: 201605

REACTIONS (4)
  - Interstitial lung disease [Fatal]
  - Respiratory disorder [Not Recovered/Not Resolved]
  - Pulmonary toxicity [Not Recovered/Not Resolved]
  - Radiation pneumonitis [Unknown]

NARRATIVE: CASE EVENT DATE: 2016
